FAERS Safety Report 11896389 (Version 1)
Quarter: 2016Q1

REPORT INFORMATION
  Report Type: Spontaneous
  Country: JP (occurrence: JP)
  Receive Date: 20160107
  Receipt Date: 20160107
  Transmission Date: 20160526
  Serious: Yes (Other)
  Sender: FDA-Public Use
  Company Number: JP-MYLANLABS-2016M1000366

PATIENT

DRUGS (5)
  1. PREDNISOLONE. [Concomitant]
     Active Substance: PREDNISOLONE
     Indication: PRODUCT USED FOR UNKNOWN INDICATION
     Dosage: 100 MG/BODY ON DAYS 3~7 (FIRST COURSE)
     Route: 065
  2. RITUXIMAB [Suspect]
     Active Substance: RITUXIMAB
     Indication: TESTIS CANCER
     Dosage: 375 MG/M2 ON DAY 1 (FIRST COURSE)
     Route: 065
  3. DOXORUBICIN [Suspect]
     Active Substance: DOXORUBICIN
     Indication: TESTIS CANCER
     Dosage: 50 MG/M2 ON DAY 3 (FIRST COURSE)
     Route: 065
  4. VINCRISTINE [Suspect]
     Active Substance: VINCRISTINE
     Indication: TESTIS CANCER
     Dosage: 1.4 MG/M2 ON DAY 3 (FIRST COURSE)
     Route: 065
  5. CYCLOPHOSPHAMIDE. [Suspect]
     Active Substance: CYCLOPHOSPHAMIDE
     Indication: TESTIS CANCER
     Dosage: 750 MG/M2 ON DAY 3 (FIRST COURSE)
     Route: 065

REACTIONS (2)
  - Interstitial lung disease [Recovered/Resolved]
  - Hypoaesthesia [Unknown]
